FAERS Safety Report 4277374-8 (Version None)
Quarter: 2004Q1

REPORT INFORMATION
  Report Type: 
  Country: None (occurrence: None)
  Receive Date: 20040122
  Receipt Date: 20031202
  Transmission Date: 20041129
  Serious: Yes (Hospitalization)
  Sender: FDA-Public Use
  Company Number: 200320817US

PATIENT
  Sex: Female

DRUGS (21)
  1. ARAVA [Suspect]
     Indication: RHEUMATOID ARTHRITIS
     Dosage: DOSE: UNK
     Route: 048
     Dates: start: 20010326, end: 20010530
  2. METHOTREXATE [Concomitant]
     Indication: RHEUMATOID ARTHRITIS
  3. FOSAMAX [Concomitant]
  4. PREDNISONE [Concomitant]
     Route: 048
  5. CALCIUM [Concomitant]
     Dosage: DOSE: UNK
  6. AZATHIOPRINE [Concomitant]
     Route: 048
  7. PLAQUENIL [Concomitant]
     Route: 048
  8. FLEXERIL [Concomitant]
     Route: 048
  9. COUMADIN [Concomitant]
  10. ASPIRIN [Concomitant]
     Route: 048
  11. TOPROL-XL [Concomitant]
     Route: 048
  12. LANOXIN [Concomitant]
     Route: 048
  13. PAMELOR [Concomitant]
  14. FOLIC ACID [Concomitant]
  15. AMBIEN [Concomitant]
  16. PREVACID [Concomitant]
  17. ALBUTEROL [Concomitant]
     Dosage: DOSE: UNK
  18. IMURAN [Concomitant]
     Route: 048
  19. SILVADENE [Concomitant]
     Dosage: DOSE: UNK
  20. PERCOCET [Concomitant]
  21. COUGH AND COLD PREPARATIONS [Concomitant]

REACTIONS (22)
  - ANOREXIA [None]
  - ARTHRITIS [None]
  - ASTHENIA [None]
  - ATRIAL FIBRILLATION [None]
  - BLOOD UREA INCREASED [None]
  - CARDIAC DISORDER [None]
  - CARDIOMEGALY [None]
  - CRACKLES LUNG [None]
  - DYSPNOEA [None]
  - ELECTROCARDIOGRAM ST SEGMENT ABNORMAL [None]
  - FATIGUE [None]
  - HEART RATE INCREASED [None]
  - INTERNATIONAL NORMALISED RATIO INCREASED [None]
  - MALAISE [None]
  - MUSCULAR WEAKNESS [None]
  - NAUSEA [None]
  - PLEURAL EFFUSION [None]
  - PNEUMONITIS [None]
  - PROTHROMBIN TIME PROLONGED [None]
  - PYREXIA [None]
  - RESPIRATORY DISTRESS [None]
  - WHITE BLOOD CELL COUNT INCREASED [None]
